FAERS Safety Report 9995180 (Version 1)
Quarter: 2014Q1

REPORT INFORMATION
  Report Type: Spontaneous
  Country: US (occurrence: None)
  Receive Date: 20140214
  Receipt Date: 20140214
  Transmission Date: 20141002
  Serious: Yes (Other)
  Sender: FDA-Public Use
  Company Number: US-014271

PATIENT
  Age: 50 Year
  Sex: Female

DRUGS (1)
  1. PICO-SALAX (NOT SPECIFIED) [Suspect]
     Indication: BOWEL PREPARATION
     Dosage: FIRST DOSE: 2:00 PM, SECOND DOSE: 8:00 PM ORAL)
     Route: 048
     Dates: start: 20131217, end: 20131217

REACTIONS (3)
  - Abdominal pain upper [None]
  - Vomiting [None]
  - Muscle spasms [None]
